FAERS Safety Report 6154237-4 (Version None)
Quarter: 2009Q2

REPORT INFORMATION
  Report Type: 
  Country: None (occurrence: None)
  Receive Date: 20090414
  Receipt Date: 20090408
  Transmission Date: 20091009
  Serious: Yes (Hospitalization, Other)
  Sender: FDA-Public Use
  Company Number: US-ASTRAZENECA-2009UW08929

PATIENT
  Age: 23002 Day
  Sex: Female

DRUGS (7)
  1. CRESTOR [Suspect]
     Route: 048
     Dates: start: 20070701, end: 20080328
  2. FENOFIBRATE [Suspect]
     Indication: HYPERLIPIDAEMIA
     Route: 048
     Dates: start: 20070701, end: 20080328
  3. FENOFIBRATE [Suspect]
     Route: 048
     Dates: start: 20070501, end: 20070701
  4. INDAPAMIDE [Suspect]
     Indication: HYPERTENSION
     Route: 048
     Dates: start: 20080311, end: 20080328
  5. OLMESARTAN MEDOXOMIL [Suspect]
     Route: 048
     Dates: start: 20070501, end: 20080328
  6. MECOBALAMIN [Suspect]
     Dates: start: 20071201, end: 20080328
  7. TRICHLORMETHIAZIDE [Suspect]
     Route: 048
     Dates: start: 20070701, end: 20080328

REACTIONS (2)
  - DRUG ERUPTION [None]
  - PYREXIA [None]
